FAERS Safety Report 21382238 (Version 1)
Quarter: 2022Q3

REPORT INFORMATION
  Report Type: Spontaneous
  Country: US (occurrence: None)
  Receive Date: 20220926
  Receipt Date: 20220926
  Transmission Date: 20221026
  Serious: Yes (Other)
  Sender: FDA-Public Use
  Company Number: None

PATIENT
  Age: 46 Year
  Sex: Female
  Weight: 92.7 kg

DRUGS (1)
  1. LEVOTHYROXINE [Suspect]
     Active Substance: LEVOTHYROXINE
     Indication: Hypothyroidism
     Dosage: OTHER QUANTITY : 1 TABLET(S);?FREQUENCY : DAILY;?
     Route: 048
     Dates: start: 20220829, end: 20220926

REACTIONS (18)
  - Headache [None]
  - Vomiting [None]
  - Diarrhoea [None]
  - Appetite disorder [None]
  - Pyrexia [None]
  - Temperature intolerance [None]
  - Arthralgia [None]
  - Muscle spasms [None]
  - Dyspnoea [None]
  - Wheezing [None]
  - Urticaria [None]
  - Pruritus [None]
  - Nausea [None]
  - Peripheral swelling [None]
  - Peripheral swelling [None]
  - Flushing [None]
  - Joint swelling [None]
  - Oedema peripheral [None]

NARRATIVE: CASE EVENT DATE: 20220924
